FAERS Safety Report 16158036 (Version 1)
Quarter: 2019Q2

REPORT INFORMATION
  Report Type: Spontaneous
  Country: ES (occurrence: ES)
  Receive Date: 20190404
  Receipt Date: 20190404
  Transmission Date: 20190711
  Serious: Yes (Other)
  Sender: FDA-Public Use
  Company Number: ES-MYLANLABS-2019M1030667

PATIENT
  Age: 83 Year
  Sex: Female

DRUGS (3)
  1. IDAPTAN [Interacting]
     Active Substance: TRIMETAZIDINE DIHYDROCHLORIDE
     Indication: PRODUCT USED FOR UNKNOWN INDICATION
     Dosage: 20 MILLIGRAM, BID
     Route: 048
     Dates: start: 20180126, end: 20180129
  2. ESCITALOPRAM [Suspect]
     Active Substance: ESCITALOPRAM OXALATE
     Indication: PRODUCT USED FOR UNKNOWN INDICATION
     Dosage: 20 MILLIGRAM, QD
     Route: 048
     Dates: start: 20180126, end: 20180129
  3. NIFEDIPINO [Concomitant]
     Active Substance: NIFEDIPINE
     Dosage: 20 MILLIGRAM, BID
     Route: 048

REACTIONS (3)
  - Drug interaction [Unknown]
  - Depressed level of consciousness [Recovered/Resolved]
  - Product substitution error [Recovered/Resolved]

NARRATIVE: CASE EVENT DATE: 2018
